FAERS Safety Report 9402214 (Version 1)
Quarter: 2013Q3

REPORT INFORMATION
  Report Type: Spontaneous
  Country: US (occurrence: US)
  Receive Date: 20130716
  Receipt Date: 20130716
  Transmission Date: 20140515
  Serious: No
  Sender: FDA-Public Use
  Company Number: US-GLAXOSMITHKLINE-A1006019A

PATIENT
  Sex: Male

DRUGS (1)
  1. NICORETTE MINIS MINT 2 MG [Suspect]
     Indication: PRODUCT USED FOR UNKNOWN INDICATION
     Dosage: 7LOZ PER DAY
     Route: 002

REACTIONS (2)
  - Nicotine dependence [Not Recovered/Not Resolved]
  - Product quality issue [Unknown]
